FAERS Safety Report 7751607-5 (Version None)
Quarter: 2011Q3

REPORT INFORMATION
  Report Type: 
  Country: None (occurrence: None)
  Receive Date: 20110914
  Receipt Date: 20110909
  Transmission Date: 20111222
  Serious: Yes (Hospitalization)
  Sender: FDA-Public Use
  Company Number: PHEH2011US03715

PATIENT
  Sex: Male

DRUGS (4)
  1. TEKTURNA [Suspect]
     Dosage: 150 MG, EVERY OTHER DAY
  2. ANTIHYPERTENSIVE DRUGS [Suspect]
  3. TEKTURNA [Suspect]
     Dosage: 150 MG, PER DAY
  4. TEKTURNA [Suspect]
     Dosage: 300 MG, PER DAY

REACTIONS (7)
  - PRESYNCOPE [None]
  - FEELING ABNORMAL [None]
  - VOMITING [None]
  - COUGH [None]
  - DIZZINESS [None]
  - HYPERHIDROSIS [None]
  - DYSPHONIA [None]
